FAERS Safety Report 10029787 (Version 1)
Quarter: 2014Q1

REPORT INFORMATION
  Report Type: Spontaneous
  Country: US (occurrence: None)
  Receive Date: 20140319
  Receipt Date: 20140319
  Transmission Date: 20141002
  Serious: Yes (Hospitalization)
  Sender: FDA-Public Use
  Company Number: IMP_07506_2014

PATIENT
  Age: 53 Year
  Sex: Male

DRUGS (3)
  1. BUPROPION [Suspect]
     Indication: PRODUCT USED FOR UNKNOWN INDICATION
     Dosage: DF
  2. CITALOPRAM [Suspect]
     Indication: PRODUCT USED FOR UNKNOWN INDICATION
     Dosage: DF
  3. TRAMADOL [Suspect]
     Indication: PRODUCT USED FOR UNKNOWN INDICATION
     Dosage: DF

REACTIONS (9)
  - Sepsis [None]
  - Rhabdomyolysis [None]
  - Agitation [None]
  - Tachycardia [None]
  - Resting tremor [None]
  - Hyperreflexia [None]
  - Bandaemia [None]
  - White blood cell count increased [None]
  - Serotonin syndrome [None]
